FAERS Safety Report 15936628 (Version 1)
Quarter: 2019Q1

REPORT INFORMATION
  Report Type: Spontaneous
  Country: AU (occurrence: AU)
  Receive Date: 20190208
  Receipt Date: 20190208
  Transmission Date: 20190417
  Serious: Yes (Other)
  Sender: FDA-Public Use
  Company Number: AU-SA-2017SA132556

PATIENT
  Age: 44 Year
  Sex: Female

DRUGS (1)
  1. ALEMTUZUMAB [Suspect]
     Active Substance: ALEMTUZUMAB
     Indication: RELAPSING-REMITTING MULTIPLE SCLEROSIS
     Dosage: UNK UNK,UNK
     Route: 065
     Dates: start: 201511

REACTIONS (3)
  - Myositis [Recovered/Resolved]
  - Myalgia [Recovered/Resolved]
  - Autoimmune disorder [Recovered/Resolved]
